FAERS Safety Report 21978481 (Version 6)
Quarter: 2023Q2

REPORT INFORMATION
  Report Type: Spontaneous
  Country: US (occurrence: US)
  Receive Date: 20230210
  Receipt Date: 20230407
  Transmission Date: 20230722
  Serious: No
  Sender: FDA-Public Use
  Company Number: US-PFIZER INC-PV202300024944

PATIENT
  Age: 70 Year
  Sex: Female
  Weight: 65.77 kg

DRUGS (10)
  1. IBRANCE [Suspect]
     Active Substance: PALBOCICLIB
     Indication: Breast cancer metastatic
     Dosage: 100 MG
  2. IBRANCE [Suspect]
     Active Substance: PALBOCICLIB
     Dosage: 125 MG, DAILY FOR 28 DAYS THEN OFF FOR A WEEK
     Dates: start: 2022
  3. IBRANCE [Suspect]
     Active Substance: PALBOCICLIB
     Dosage: 125 MG
  4. ANASTROZOLE [Concomitant]
     Active Substance: ANASTROZOLE
     Indication: Neoplasm malignant
     Dosage: 1 MG, 1X/DAY
     Dates: start: 2022
  5. DIGOXIN [Concomitant]
     Active Substance: DIGOXIN
     Indication: Cardiac failure congestive
     Dosage: 0.125 MG, 1X/DAY
     Dates: start: 2012
  6. LISINOPRIL [Concomitant]
     Active Substance: LISINOPRIL
     Indication: Hypertension
     Dosage: 5 MG, 1X/DAY
     Dates: start: 2013
  7. SPIRONOLACTONE [Concomitant]
     Active Substance: SPIRONOLACTONE
     Indication: Diuretic therapy
     Dosage: 25 MG, 1X/DAY
     Dates: start: 2013
  8. CARVEDILOL [Concomitant]
     Active Substance: CARVEDILOL
     Indication: Diuretic therapy
     Dosage: 3.125 MG, 1X/DAY
     Dates: start: 2013
  9. FUROSEMIDE [Concomitant]
     Active Substance: FUROSEMIDE
     Indication: Diuretic therapy
     Dosage: 40 MG, 1X/DAY
     Dates: start: 2013
  10. ASPIRIN [Concomitant]
     Active Substance: ASPIRIN
     Indication: Antiplatelet therapy
     Dosage: 81 MG, DAILY
     Dates: start: 2013

REACTIONS (3)
  - Malaise [Unknown]
  - Off label use [Unknown]
  - Product use issue [Unknown]
